FAERS Safety Report 8086180-8 (Version None)
Quarter: 2012Q1

REPORT INFORMATION
  Report Type: 
  Country: None (occurrence: None)
  Receive Date: 20120128
  Receipt Date: 20110426
  Transmission Date: 20120608
  Serious: No
  Sender: FDA-Public Use
  Company Number: US-ABBOTT-11P-163-0721772-00

PATIENT
  Age: 53 Year
  Sex: Female

DRUGS (7)
  1. REGLAN [Concomitant]
     Indication: RHEUMATOID ARTHRITIS
  2. REDNISONE [Concomitant]
     Indication: RHEUMATOID ARTHRITIS
     Dosage: 5 MG 2 TABS DAILY
  3. HYDROCODONE BITARTRATE [Concomitant]
     Indication: PAIN
  4. HYDROCODONE BITARTRATE [Concomitant]
     Indication: RHEUMATOID ARTHRITIS
     Dosage: 10MG 1-2 TABS EVERY 4 HOURS PRN
  5. HUMIRA [Suspect]
     Dosage: 40MG/0.8 ML EVERY OTHER WEEK
  6. HUMIRA [Suspect]
     Indication: RHEUMATOID ARTHRITIS
     Dates: start: 20110201
  7. ZOLPRIDEM [Concomitant]
     Indication: INSOMNIA
     Dosage: 10 MG  1 AT BEDTIME

REACTIONS (3)
  - VISION BLURRED [None]
  - DIZZINESS [None]
  - VISUAL IMPAIRMENT [None]
